FAERS Safety Report 20448094 (Version 6)
Quarter: 2022Q1

REPORT INFORMATION
  Report Type: Spontaneous
  Country: US (occurrence: US)
  Receive Date: 20220209
  Receipt Date: 20220301
  Transmission Date: 20220423
  Serious: Yes (Other)
  Sender: FDA-Public Use
  Company Number: US-ORGANON-O2202USA000518

PATIENT
  Sex: Female
  Weight: 91.61 kg

DRUGS (9)
  1. ASMANEX [Suspect]
     Active Substance: MOMETASONE FUROATE
     Dosage: UNK
  2. ASMANEX [Suspect]
     Active Substance: MOMETASONE FUROATE
  3. ASMANEX [Suspect]
     Active Substance: MOMETASONE FUROATE
  4. ASMANEX [Suspect]
     Active Substance: MOMETASONE FUROATE
  5. ASMANEX [Suspect]
     Active Substance: MOMETASONE FUROATE
  6. ASMANEX [Suspect]
     Active Substance: MOMETASONE FUROATE
     Indication: Asthma
  7. ASMANEX [Suspect]
     Active Substance: MOMETASONE FUROATE
  8. ASMANEX [Suspect]
     Active Substance: MOMETASONE FUROATE
     Dosage: UNK
     Dates: start: 2020
  9. ASMANEX [Suspect]
     Active Substance: MOMETASONE FUROATE
     Dosage: UNK

REACTIONS (21)
  - Pneumonia [Recovered/Resolved]
  - Device malfunction [Unknown]
  - Poor quality device used [Unknown]
  - Device malfunction [Unknown]
  - Poor quality device used [Unknown]
  - Device malfunction [Unknown]
  - Poor quality device used [Unknown]
  - Device malfunction [Unknown]
  - Poor quality device used [Unknown]
  - Device malfunction [Unknown]
  - Poor quality device used [Unknown]
  - Device malfunction [Unknown]
  - Poor quality device used [Unknown]
  - Product dose omission issue [Unknown]
  - Device malfunction [Unknown]
  - Poor quality device used [Unknown]
  - Device malfunction [Unknown]
  - Poor quality device used [Unknown]
  - Device malfunction [Unknown]
  - Poor quality device used [Unknown]
  - Product dose omission issue [Unknown]

NARRATIVE: CASE EVENT DATE: 20200101
